FAERS Safety Report 15765540 (Version 1)
Quarter: 2018Q4

REPORT INFORMATION
  Report Type: Spontaneous
  Country: US (occurrence: US)
  Receive Date: 20181227
  Receipt Date: 20181227
  Transmission Date: 20190205
  Serious: No
  Sender: FDA-Public Use
  Company Number: None

PATIENT
  Age: 44 Year
  Sex: Male
  Weight: 72.45 kg

DRUGS (13)
  1. NARATRIPTAN [Concomitant]
     Active Substance: NARATRIPTAN HYDROCHLORIDE
  2. TIZANIDINE. [Concomitant]
     Active Substance: TIZANIDINE
  3. LUNESTA [Concomitant]
     Active Substance: ESZOPICLONE
  4. VITAMIN D [Concomitant]
     Active Substance: CHOLECALCIFEROL
  5. EXCEDRINE [Concomitant]
  6. AJOVY [Suspect]
     Active Substance: FREMANEZUMAB-VFRM
     Indication: MIGRAINE
     Dosage: ?          QUANTITY:1 INJECTION(S);OTHER ROUTE:SUBCUTANEOUS INJECTION?
     Route: 058
  7. AJOVY [Suspect]
     Active Substance: FREMANEZUMAB-VFRM
     Indication: HIV INFECTION
     Dosage: ?          QUANTITY:1 INJECTION(S);OTHER ROUTE:SUBCUTANEOUS INJECTION?
     Route: 058
  8. TRIUMEQ [Concomitant]
     Active Substance: ABACAVIR SULFATE\DOLUTEGRAVIR SODIUM\LAMIVUDINE
  9. VITAMIN B COMPLEX [Concomitant]
     Active Substance: CYANOCOBALAMIN\DEXPANTHENOL\NIACINAMIDE\PYRIDOXINE HYDROCHLORIDE\RIBOFLAVIN 5^-PHOSPHATE SODIUM\THIAMINE HYDROCHLORIDE\VITAMIN B COMPLEX
  10. SUMATRIPTAN. [Concomitant]
     Active Substance: SUMATRIPTAN
  11. IBUPROFEN. [Concomitant]
     Active Substance: IBUPROFEN
  12. AJOVY [Suspect]
     Active Substance: FREMANEZUMAB-VFRM
     Indication: GASTROOESOPHAGEAL REFLUX DISEASE
     Dosage: ?          QUANTITY:1 INJECTION(S);OTHER ROUTE:SUBCUTANEOUS INJECTION?
     Route: 058
  13. OMEPRAZOLE. [Concomitant]
     Active Substance: OMEPRAZOLE

REACTIONS (2)
  - Drug interaction [None]
  - Drug effect decreased [None]

NARRATIVE: CASE EVENT DATE: 20181130
